FAERS Safety Report 20469217 (Version 1)
Quarter: 2022Q1

REPORT INFORMATION
  Report Type: Report from Study
  Country: US (occurrence: US)
  Receive Date: 20220214
  Receipt Date: 20220214
  Transmission Date: 20220423
  Serious: Yes (Other)
  Sender: FDA-Public Use
  Company Number: US-JAZZ-2016-US-021034

PATIENT
  Sex: Female

DRUGS (9)
  1. XYREM [Suspect]
     Active Substance: SODIUM OXYBATE
     Indication: Narcolepsy
     Dosage: 2.25 G, BID
     Route: 048
     Dates: start: 201604, end: 2016
  2. XYREM [Suspect]
     Active Substance: SODIUM OXYBATE
     Indication: Cataplexy
     Dosage: DOSE ADJUSTMENT
     Route: 048
     Dates: start: 201604, end: 201607
  3. XYREM [Suspect]
     Active Substance: SODIUM OXYBATE
     Dosage: 4.5 G, BID
     Route: 048
     Dates: start: 201608
  4. BUPIVACAINE [Concomitant]
     Active Substance: BUPIVACAINE
  5. BUTALBITAL [Concomitant]
     Active Substance: BUTALBITAL
  6. CLONIDINE [Concomitant]
     Active Substance: CLONIDINE
  7. MORPHINE SULFATE [Concomitant]
     Active Substance: MORPHINE SULFATE
  8. NUVIGIL [Concomitant]
     Active Substance: ARMODAFINIL
  9. PROVIGIL [Concomitant]
     Active Substance: MODAFINIL

REACTIONS (2)
  - Deafness [Not Recovered/Not Resolved]
  - Unevaluable event [Unknown]
